FAERS Safety Report 9506114 (Version 1)
Quarter: 2013Q1

REPORT INFORMATION
  Report Type: Spontaneous
  Country: US (occurrence: None)
  Receive Date: 20130301
  Receipt Date: 20130301
  Transmission Date: 20140127
  Serious: Yes (Hospitalization, Other)
  Sender: FDA-Public Use
  Company Number: RB-38713-2012

PATIENT
  Sex: Female

DRUGS (6)
  1. SUBOXONE, 8 MG, BECKIT RICKETT [Suspect]
     Indication: PAIN MANAGEMENT
     Route: 058
     Dates: start: 2011
  2. TYLENOL WITH CODEINE [Suspect]
     Indication: PAIN
     Route: 048
  3. HYDROCODONE [Suspect]
     Indication: PAIN
     Route: 048
  4. AMITRIPTYLINE [Concomitant]
  5. FLEXERIL [Concomitant]
  6. CHLOROTHIAZIDE [Concomitant]

REACTIONS (2)
  - Mental disorder [None]
  - Accidental overdose [None]
